FAERS Safety Report 10029635 (Version 1)
Quarter: 2014Q1

REPORT INFORMATION
  Report Type: Spontaneous
  Country: US (occurrence: None)
  Receive Date: 20140320
  Receipt Date: 20140320
  Transmission Date: 20141002
  Serious: No
  Sender: FDA-Public Use
  Company Number: None

PATIENT
  Sex: 0

DRUGS (1)
  1. FLONASE [Suspect]

REACTIONS (14)
  - Swelling face [None]
  - Incorrect dose administered [None]
  - Intercepted drug dispensing error [None]
  - Asthma [None]
  - Dysphagia [None]
  - Asthenia [None]
  - Gait disturbance [None]
  - Decreased appetite [None]
  - Rash [None]
  - Anger [None]
  - Cough [None]
  - Choking [None]
  - Overweight [None]
  - Respiratory disorder [None]
